FAERS Safety Report 23645251 (Version 1)
Quarter: 2024Q1

REPORT INFORMATION
  Report Type: Spontaneous
  Country: GB (occurrence: GB)
  Receive Date: 20240318
  Receipt Date: 20240318
  Transmission Date: 20240410
  Serious: Yes (Other)
  Sender: FDA-Public Use
  Company Number: GB-BAYER-2024A039219

PATIENT

DRUGS (1)
  1. XARELTO [Suspect]
     Active Substance: RIVAROXABAN
     Indication: Product used for unknown indication
     Dosage: UNK
     Route: 048

REACTIONS (6)
  - Internal haemorrhage [Unknown]
  - Haemorrhage [Unknown]
  - Exsanguination [Unknown]
  - Contusion [Unknown]
  - Weight increased [Unknown]
  - Post-traumatic stress disorder [Unknown]
